FAERS Safety Report 6695711-1 (Version None)
Quarter: 2010Q2

REPORT INFORMATION
  Report Type: 
  Country: None (occurrence: None)
  Receive Date: 20100426
  Receipt Date: 20100412
  Transmission Date: 20101027
  Serious: Yes (Other)
  Sender: FDA-Public Use
  Company Number: US-ASTRAZENECA-2009SE13107

PATIENT
  Age: 17794 Day
  Sex: Female

DRUGS (6)
  1. SEROQUEL [Suspect]
     Dosage: 25MG-100MG AT NIGHT
     Route: 048
     Dates: start: 20060301, end: 20070328
  2. AMBIEN [Concomitant]
     Route: 048
     Dates: start: 20070328
  3. LITHIUM CARBONATE [Concomitant]
     Dosage: 300MG AT AM AND 600MG AT NIGHT
     Dates: start: 20040226
  4. LORAZEPAM [Concomitant]
     Dates: start: 20040226
  5. ALPRAZOLAM [Concomitant]
     Indication: PANIC ATTACK
     Dosage: AS REQUIRED
     Dates: start: 20040226
  6. LEXAPRO [Concomitant]
     Indication: DEPRESSION
     Dates: start: 20060821

REACTIONS (4)
  - ABDOMINAL DISTENSION [None]
  - DIABETES MELLITUS [None]
  - NEUROPATHY PERIPHERAL [None]
  - WEIGHT INCREASED [None]
